FAERS Safety Report 14316006 (Version 1)
Quarter: 2017Q4

REPORT INFORMATION
  Report Type: Spontaneous
  Country: FR (occurrence: FR)
  Receive Date: 20171221
  Receipt Date: 20171221
  Transmission Date: 20180321
  Serious: Yes (Other)
  Sender: FDA-Public Use
  Company Number: FR-MERCK KGAA-2037618

PATIENT
  Sex: Female

DRUGS (7)
  1. NOVOTHYROX [Suspect]
     Active Substance: LEVOTHYROXINE SODIUM
  2. DOLIPRANE [Concomitant]
     Active Substance: ACETAMINOPHEN
  3. CORGARD [Concomitant]
     Active Substance: NADOLOL
  4. NOVOTHYROX [Suspect]
     Active Substance: LEVOTHYROXINE SODIUM
     Indication: PRODUCT USED FOR UNKNOWN INDICATION
     Dates: start: 2017
  5. ALPRAZOLAM. [Concomitant]
     Active Substance: ALPRAZOLAM
  6. TAHOR [Concomitant]
     Active Substance: ATORVASTATIN CALCIUM
  7. FLECAINE LP 100 [Concomitant]

REACTIONS (5)
  - Alopecia [Not Recovered/Not Resolved]
  - Vagus nerve disorder [None]
  - Fatigue [Not Recovered/Not Resolved]
  - Staphylococcal infection [None]
  - Weight increased [Not Recovered/Not Resolved]
